FAERS Safety Report 6731711-0 (Version None)
Quarter: 2010Q2

REPORT INFORMATION
  Report Type: 
  Country: None (occurrence: None)
  Receive Date: 20100518
  Receipt Date: 20100518
  Transmission Date: 20101027
  Serious: Yes (Life-Threatening, Hospitalization)
  Sender: FDA-Public Use
  Company Number: None

PATIENT
  Age: 53 Year
  Sex: Male
  Weight: 68.0396 kg

DRUGS (1)
  1. CYMBALTA [Suspect]
     Indication: NEURALGIA
     Dosage: 60 MG 1 PER DAY PO
     Route: 048
     Dates: start: 20080901, end: 20090330

REACTIONS (11)
  - ABNORMAL BEHAVIOUR [None]
  - ARRHYTHMIA [None]
  - DECREASED APPETITE [None]
  - DYSPNOEA EXERTIONAL [None]
  - HYPOPHAGIA [None]
  - HYPOTONIA [None]
  - IMPAIRED WORK ABILITY [None]
  - MUSCLE ATROPHY [None]
  - PARAESTHESIA [None]
  - SPEECH DISORDER [None]
  - WEIGHT DECREASED [None]
